FAERS Safety Report 12157396 (Version 1)
Quarter: 2016Q1

REPORT INFORMATION
  Report Type: Spontaneous
  Country: US (occurrence: US)
  Receive Date: 20160308
  Receipt Date: 20160308
  Transmission Date: 20160526
  Serious: Yes (Other)
  Sender: FDA-Public Use
  Company Number: US-JNJFOC-20160226271

PATIENT
  Age: 64 Year
  Sex: Female
  Weight: 72.58 kg

DRUGS (5)
  1. SYNTHROID [Concomitant]
     Active Substance: LEVOTHYROXINE SODIUM
     Indication: HYPOTHYROIDISM
     Route: 065
  2. VITAMIN D3 [Concomitant]
     Active Substance: CHOLECALCIFEROL
     Indication: PRODUCT USED FOR UNKNOWN INDICATION
     Route: 065
  3. NEOSPORIN [Suspect]
     Active Substance: BACITRACIN ZINC\NEOMYCIN SULFATE\POLYMYXIN B SULFATE
     Indication: INFECTION PROPHYLAXIS
     Dosage: APPLIED BY FINGER TIP
     Route: 061
     Dates: start: 20160122, end: 20160125
  4. NEOSPORIN [Suspect]
     Active Substance: BACITRACIN ZINC\NEOMYCIN SULFATE\POLYMYXIN B SULFATE
     Indication: SKIN CANCER
     Dosage: APPLIED BY FINGER TIP
     Route: 061
     Dates: start: 20160122, end: 20160125
  5. LIPITOR [Concomitant]
     Active Substance: ATORVASTATIN CALCIUM
     Indication: BLOOD CHOLESTEROL
     Route: 065

REACTIONS (5)
  - Product use issue [Unknown]
  - Staphylococcal infection [Not Recovered/Not Resolved]
  - Off label use [Unknown]
  - Wound drainage [Not Recovered/Not Resolved]
  - Rash [Not Recovered/Not Resolved]

NARRATIVE: CASE EVENT DATE: 201601
